FAERS Safety Report 8541165-X (Version None)
Quarter: 2012Q3

REPORT INFORMATION
  Report Type: 
  Country: None (occurrence: None)
  Receive Date: 20120726
  Receipt Date: 20120716
  Transmission Date: 20120928
  Serious: Yes (Death, Life-Threatening, Hospitalization, Other)
  Sender: FDA-Public Use
  Company Number: US-ACTELION-A-NJ2011-50149

PATIENT

DRUGS (1)
  1. EPOPROSTENOL SODIUM [Suspect]
     Indication: PULMONARY ARTERIAL HYPERTENSION
     Dosage: 54 NG/KG, PER MIN
     Route: 041
     Dates: start: 20110217, end: 20120713

REACTIONS (3)
  - DEATH [None]
  - CONDITION AGGRAVATED [None]
  - PULMONARY ARTERIAL HYPERTENSION [None]
